FAERS Safety Report 9656733 (Version 3)
Quarter: 2013Q4

REPORT INFORMATION
  Report Type: Spontaneous
  Country: FR (occurrence: None)
  Receive Date: 20131022
  Receipt Date: 20131031
  Transmission Date: 20140711
  Serious: Yes (Other)
  Sender: FDA-Public Use
  Company Number: 2013038455

PATIENT
  Age: 74 Year
  Sex: Female

DRUGS (5)
  1. PRIVIGEN [Suspect]
     Indication: CLOSTRIDIUM DIFFICILE COLITIS
     Dosage: 20 G QD, THE INITIAL RATE OF INFUSION WAS 0.3 ML/KG/H AND WAS INCREASED EVERY 30 MINUTES UP TO 4.8 ML/KG/H?(NOT OTHERWISE SPECIFIED)?INTRAVENOSU, (NOT OTHERWISE SPECIFIED)
     Route: 042
     Dates: start: 20131003, end: 20131003
  2. SOTALEX [Concomitant]
  3. LIPANTHYL [Concomitant]
  4. CACIT D3 [Concomitant]
  5. ANAFRANIL (CLOMIPRAMINE HYDROCHLORIDE) [Concomitant]

REACTIONS (5)
  - Acute pulmonary oedema [None]
  - Hypertension [None]
  - Tachycardia [None]
  - Pyrexia [None]
  - Infusion related reaction [None]
